FAERS Safety Report 7822050 (Version 2)
Quarter: 2014Q2

REPORT INFORMATION
  Report Type: Spontaneous
  Country: US (occurrence: US)
  Receive Date: 20110222
  Receipt Date: 20140501
  Transmission Date: 20141212
  Serious: Yes (Hospitalization, Other)
  Sender: FDA-Public Use
  Company Number: US-ROCHE-735731

PATIENT
  Age: 43 Year
  Sex: Male
  Weight: 82.6 kg

DRUGS (5)
  1. ACCUTANE [Suspect]
     Indication: ACNE
     Route: 065
  2. ACCUTANE [Suspect]
     Route: 065
     Dates: start: 19910701, end: 19920101
  3. ACCUTANE [Suspect]
     Route: 065
     Dates: start: 20021107, end: 20030327
  4. ACCUTANE [Suspect]
     Route: 065
     Dates: start: 200301, end: 200306
  5. AMNESTEEM [Suspect]
     Indication: ACNE
     Route: 065
     Dates: start: 20030505, end: 20030626

REACTIONS (7)
  - Perirectal abscess [Unknown]
  - Crohn^s disease [Not Recovered/Not Resolved]
  - Gastrointestinal injury [Unknown]
  - Colitis ulcerative [Unknown]
  - Inflammatory bowel disease [Unknown]
  - Blood triglycerides increased [Unknown]
  - Lip dry [Recovering/Resolving]
